FAERS Safety Report 16314868 (Version 1)
Quarter: 2019Q2

REPORT INFORMATION
  Report Type: Spontaneous
  Country: CN (occurrence: CN)
  Receive Date: 20190515
  Receipt Date: 20190515
  Transmission Date: 20190711
  Serious: Yes (Other)
  Sender: FDA-Public Use
  Company Number: CN-PFIZER INC-2019198834

PATIENT
  Age: 7 Decade
  Sex: Male

DRUGS (6)
  1. CELEBREX [Suspect]
     Active Substance: CELECOXIB
     Indication: SPINAL OSTEOARTHRITIS
     Dosage: 1 DF, DAILY
     Route: 048
  2. DEXAMETHASONE. [Concomitant]
     Active Substance: DEXAMETHASONE
     Indication: PAIN
  3. CELEBREX [Suspect]
     Active Substance: CELECOXIB
     Indication: PAIN
  4. MANNITOL. [Concomitant]
     Active Substance: MANNITOL
     Indication: SPINAL OSTEOARTHRITIS
     Dosage: UNK
     Route: 041
  5. MANNITOL. [Concomitant]
     Active Substance: MANNITOL
     Indication: PAIN
  6. DEXAMETHASONE. [Concomitant]
     Active Substance: DEXAMETHASONE
     Indication: SPINAL OSTEOARTHRITIS
     Dosage: UNK
     Route: 041

REACTIONS (2)
  - Drug abuser [Unknown]
  - Drug screen positive [Unknown]

NARRATIVE: CASE EVENT DATE: 20190508
